FAERS Safety Report 5114545-2 (Version None)
Quarter: 2006Q3

REPORT INFORMATION
  Report Type: 
  Country: None (occurrence: None)
  Receive Date: 20060926
  Receipt Date: 20060116
  Transmission Date: 20061208
  Serious: Yes (Other)
  Sender: FDA-Public Use
  Company Number: PHBS2006BE01064

PATIENT
  Age: 68 Year
  Sex: Male

DRUGS (13)
  1. ZOMETA [Suspect]
     Indication: METASTASES TO BONE
     Dosage: 4 MG
     Dates: start: 20031022, end: 20031022
  2. ZOMETA [Suspect]
     Dates: start: 20031119, end: 20031119
  3. ZOMETA [Suspect]
     Dates: start: 20031217, end: 20031217
  4. ZOMETA [Suspect]
     Dates: start: 20040129, end: 20040129
  5. ZOMETA [Suspect]
     Dates: start: 20040610, end: 20040610
  6. ZOMETA [Suspect]
     Dates: start: 20040708, end: 20040708
  7. ZOMETA [Suspect]
     Dates: start: 20040805, end: 20040805
  8. ZOMETA [Suspect]
     Dates: start: 20050120, end: 20050120
  9. ZOMETA [Suspect]
     Dates: start: 20050217, end: 20050217
  10. ZOMETA [Suspect]
     Dates: start: 20050317, end: 20050317
  11. ESTRACYT [Concomitant]
     Route: 065
     Dates: start: 20020801
  12. MITOXANTRONE [Concomitant]
     Route: 065
     Dates: start: 20040101
  13. MEDROL [Concomitant]
     Route: 065
     Dates: start: 20040101

REACTIONS (6)
  - BLOOD CREATININE INCREASED [None]
  - BLOOD UREA INCREASED [None]
  - OSTEONECROSIS [None]
  - PAIN IN JAW [None]
  - RENAL IMPAIRMENT [None]
  - TOOTH ABSCESS [None]
